FAERS Safety Report 7938353-X (Version None)
Quarter: 2011Q4

REPORT INFORMATION
  Report Type: 
  Country: None (occurrence: None)
  Receive Date: 20111123
  Receipt Date: 20111101
  Transmission Date: 20120403
  Serious: Yes (Other)
  Sender: FDA-Public Use
  Company Number: US-ELI_LILLY_AND_COMPANY-US201111000914

PATIENT
  Age: 10 Year
  Sex: Female
  Weight: 43.084 kg

DRUGS (4)
  1. STRATTERA [Suspect]
     Dosage: 10 MG, QD
  2. STRATTERA [Suspect]
     Dosage: 18 MG, QD
  3. STRATTERA [Suspect]
     Dosage: 10 MG, QD
  4. CELEXA [Concomitant]

REACTIONS (13)
  - INSOMNIA [None]
  - DISTURBANCE IN ATTENTION [None]
  - PALPITATIONS [None]
  - CHEST PAIN [None]
  - WRONG TECHNIQUE IN DRUG USAGE PROCESS [None]
  - DEPRESSION [None]
  - SUICIDAL IDEATION [None]
  - HEART RATE IRREGULAR [None]
  - CRYING [None]
  - DECREASED APPETITE [None]
  - MOOD ALTERED [None]
  - DRUG INEFFECTIVE [None]
  - THROAT IRRITATION [None]
